FAERS Safety Report 24137131 (Version 1)
Quarter: 2024Q3

REPORT INFORMATION
  Report Type: Report from Study
  Country: US (occurrence: US)
  Receive Date: 20240725
  Receipt Date: 20240725
  Transmission Date: 20241017
  Serious: No
  Sender: APELLIS PHARMACEUTICALS
  Company Number: US-APELLIS-2024-APL-0000491

PATIENT

DRUGS (1)
  1. PEGCETACOPLAN [Suspect]
     Active Substance: PEGCETACOPLAN
     Indication: Paroxysmal nocturnal haemoglobinuria
     Dosage: 1080MG TWICE WEEKLY
     Route: 058
     Dates: start: 20211208

REACTIONS (5)
  - Fatigue [Unknown]
  - Pain [Unknown]
  - Contusion [Unknown]
  - Pain in extremity [Unknown]
  - Stress [Unknown]

NARRATIVE: CASE EVENT DATE: 20240713
